FAERS Safety Report 8386655-8 (Version None)
Quarter: 2012Q2

REPORT INFORMATION
  Report Type: 
  Country: None (occurrence: None)
  Receive Date: 20120525
  Receipt Date: 20120522
  Transmission Date: 20120825
  Serious: No
  Sender: FDA-Public Use
  Company Number: US-PFIZER INC-2012009220

PATIENT
  Sex: Female

DRUGS (4)
  1. CELEBREX [Suspect]
     Indication: PAIN
     Dosage: 200 MG, UNK
     Route: 048
     Dates: start: 20120101, end: 20120101
  2. GABAPENTIN [Concomitant]
     Indication: PAIN
     Dosage: 300 MG, UNK
     Dates: start: 20110101
  3. DIOVAN HCT [Concomitant]
     Indication: HYPERTENSION
     Dosage: 320MG/25MG
     Dates: start: 20110101
  4. LISINOPRIL [Concomitant]
     Indication: HYPERTENSION
     Dosage: 20 MG, UNK
     Dates: start: 20110101

REACTIONS (3)
  - SWELLING [None]
  - RASH [None]
  - DYSPNOEA [None]
